FAERS Safety Report 22017633 (Version 6)
Quarter: 2023Q4

REPORT INFORMATION
  Report Type: Spontaneous
  Country: US (occurrence: US)
  Receive Date: 20230221
  Receipt Date: 20231220
  Transmission Date: 20240110
  Serious: No
  Sender: FDA-Public Use
  Company Number: US-BRISTOL-MYERS SQUIBB COMPANY-2023-025605

PATIENT
  Age: 80 Year
  Sex: Female

DRUGS (3)
  1. SPRYCEL [Suspect]
     Active Substance: DASATINIB
     Indication: Myeloid leukaemia
     Route: 048
     Dates: start: 20230102
  2. SPRYCEL [Suspect]
     Active Substance: DASATINIB
     Indication: Chronic myeloid leukaemia
     Route: 048
     Dates: start: 202201
  3. SPRYCEL [Suspect]
     Active Substance: DASATINIB
     Route: 048
     Dates: start: 201609

REACTIONS (13)
  - Feeling cold [Unknown]
  - Dry skin [Unknown]
  - Arthralgia [Unknown]
  - Fluid retention [Unknown]
  - Abdominal distension [Unknown]
  - Blood chloride increased [Unknown]
  - Allergy to metals [Unknown]
  - Peripheral swelling [Unknown]
  - Skin discolouration [Unknown]
  - Micturition urgency [Unknown]
  - Urine output decreased [Unknown]
  - Urine odour abnormal [Unknown]
  - Neutrophil count decreased [Recovered/Resolved]
